FAERS Safety Report 24592496 (Version 1)
Quarter: 2024Q4

REPORT INFORMATION
  Report Type: Spontaneous
  Country: US (occurrence: US)
  Receive Date: 20241108
  Receipt Date: 20241108
  Transmission Date: 20250114
  Serious: Yes (Other)
  Sender: ROCHE
  Company Number: US-ROCHE-10000127445

PATIENT
  Age: 43 Year
  Sex: Female

DRUGS (2)
  1. ENTRECTINIB [Suspect]
     Active Substance: ENTRECTINIB
     Indication: Non-small cell lung cancer
     Route: 065
  2. NATALIZUMAB [Concomitant]
     Active Substance: NATALIZUMAB

REACTIONS (2)
  - Hypertransaminasaemia [Recovered/Resolved]
  - Dysgeusia [Unknown]
